FAERS Safety Report 12271488 (Version 2)
Quarter: 2016Q2

REPORT INFORMATION
  Report Type: Spontaneous
  Country: US (occurrence: US)
  Receive Date: 20160415
  Receipt Date: 20160418
  Transmission Date: 20160815
  Serious: Yes (Hospitalization)
  Sender: FDA-Public Use
  Company Number: PHEH2016US008702

PATIENT
  Sex: Male

DRUGS (14)
  1. SANDOSTATIN LAR DEPOT [Suspect]
     Active Substance: OCTREOTIDE ACETATE
     Indication: PAIN
     Dosage: 5 MG, TID
     Route: 065
  2. LEVOTHYROXINE. [Suspect]
     Active Substance: LEVOTHYROXINE
     Dosage: 50 MG, UNK
     Route: 065
  3. ACETYLSALICYLIC ACID [Concomitant]
     Active Substance: ASPIRIN
     Indication: PRODUCT USED FOR UNKNOWN INDICATION
     Dosage: 81 MG, UNK
     Route: 065
  4. TESTOSTERONE. [Concomitant]
     Active Substance: TESTOSTERONE
     Indication: PRODUCT USED FOR UNKNOWN INDICATION
     Dosage: 200 MG, QMO
     Route: 065
  5. SIGNIFOR LAR [Suspect]
     Active Substance: PASIREOTIDE
     Indication: ACROMEGALY
     Route: 065
  6. SANDOSTATIN LAR DEPOT [Suspect]
     Active Substance: OCTREOTIDE ACETATE
     Dosage: 5 MG, QID
     Route: 065
  7. PREDNISONE. [Suspect]
     Active Substance: PREDNISONE
     Indication: PRODUCT USED FOR UNKNOWN INDICATION
     Route: 065
  8. AMOXICILLIN. [Suspect]
     Active Substance: AMOXICILLIN
     Indication: TOOTH INFECTION
     Dosage: 500 MG, UNK
     Route: 065
  9. LEVOTHYROXINE. [Suspect]
     Active Substance: LEVOTHYROXINE
     Indication: PRODUCT USED FOR UNKNOWN INDICATION
     Dosage: 125 MG, UNK
     Route: 065
  10. TESSALON [Concomitant]
     Active Substance: BENZONATATE
     Indication: PRODUCT USED FOR UNKNOWN INDICATION
     Dosage: 4 MG, UNK
     Route: 065
  11. CETIRIZINE [Concomitant]
     Active Substance: CETIRIZINE HYDROCHLORIDE
     Indication: PRODUCT USED FOR UNKNOWN INDICATION
     Dosage: 10 MG, UNK
     Route: 065
  12. CLONAZEPAM. [Concomitant]
     Active Substance: CLONAZEPAM
     Indication: PRODUCT USED FOR UNKNOWN INDICATION
     Route: 065
  13. FLUOXETINE [Concomitant]
     Active Substance: FLUOXETINE HYDROCHLORIDE
     Indication: PRODUCT USED FOR UNKNOWN INDICATION
     Dosage: 50 UG, UNK
     Route: 065
  14. SANDOSTATIN LAR DEPOT [Suspect]
     Active Substance: OCTREOTIDE ACETATE
     Dosage: 5 MG, 6 TO 8 TIMES PER DAY
     Route: 065

REACTIONS (10)
  - Vision blurred [Unknown]
  - Blood pressure increased [Unknown]
  - Swollen tongue [Unknown]
  - Dizziness [Unknown]
  - Headache [Unknown]
  - Product use issue [Unknown]
  - Cerebrovascular accident [Unknown]
  - Blood glucose increased [Unknown]
  - Drug ineffective [Unknown]
  - Off label use [Unknown]
